FAERS Safety Report 4355879-9 (Version None)
Quarter: 2004Q2

REPORT INFORMATION
  Report Type: 
  Country: None (occurrence: None)
  Receive Date: 20040507
  Receipt Date: 20040507
  Transmission Date: 20050107
  Serious: Yes (Hospitalization, Other)
  Sender: FDA-Public Use
  Company Number: None

PATIENT
  Age: 84 Year
  Sex: Male

DRUGS (13)
  1. GATIFLOXACIN [Suspect]
     Indication: URINARY TRACT INFECTION
     Dosage: 400 MG DAILY ORAL
     Route: 048
     Dates: start: 20040312, end: 20040420
  2. NPH INSULIN [Concomitant]
  3. GLIPIZIDE [Concomitant]
  4. CELECOXIB [Concomitant]
  5. CLOPIDROGEL [Concomitant]
  6. RAMIPRIL [Concomitant]
  7. CLONIDINE HCL [Concomitant]
  8. ASPIRIN [Concomitant]
  9. TOLTERADINE LA [Concomitant]
  10. OXYBUTININ [Concomitant]
  11. ISORDIL [Concomitant]
  12. RANITIDINE [Concomitant]
  13. ATENOLOL [Concomitant]

REACTIONS (2)
  - HYPOGLYCAEMIA [None]
  - MENTAL STATUS CHANGES [None]
